FAERS Safety Report 8381353-9 (Version None)
Quarter: 2012Q2

REPORT INFORMATION
  Report Type: 
  Country: None (occurrence: None)
  Receive Date: 20120523
  Receipt Date: 20120515
  Transmission Date: 20120825
  Serious: Yes (Hospitalization)
  Sender: FDA-Public Use
  Company Number: PE-PFIZER INC-2012118981

PATIENT
  Age: 39 Year
  Sex: Female
  Weight: 62 kg

DRUGS (5)
  1. GABAPENTIN [Suspect]
     Indication: EPILEPSY
     Dosage: UNK, 3X/DAY
     Route: 048
     Dates: start: 20101020, end: 20120302
  2. VALPROIC ACID [Suspect]
     Indication: EPILEPSY
     Dosage: 500 MG, 3X/DAY
     Route: 048
     Dates: start: 20020101, end: 20120302
  3. LAMOTRIGINE [Suspect]
     Dosage: 50 MG, 3X/DAY
     Route: 048
  4. VALPROIC ACID [Suspect]
     Dosage: 500 MG, 3X/DAY
     Route: 048
  5. LAMOTRIGINE [Suspect]
     Indication: EPILEPSY
     Dosage: 50 MG, 3X/DAY
     Route: 048
     Dates: start: 20020101, end: 20120302

REACTIONS (1)
  - ACUTE PSYCHOSIS [None]
